FAERS Safety Report 5970293-8 (Version None)
Quarter: 2008Q4

REPORT INFORMATION
  Report Type: 
  Country: None (occurrence: None)
  Receive Date: 20081126
  Receipt Date: 20081119
  Transmission Date: 20090506
  Serious: Yes (Other)
  Sender: FDA-Public Use
  Company Number: FR-PFIZER INC-2008098796

PATIENT
  Sex: Female

DRUGS (1)
  1. CHAMPIX [Suspect]

REACTIONS (2)
  - ANXIETY [None]
  - PANIC ATTACK [None]
